FAERS Safety Report 19278687 (Version 1)
Quarter: 2021Q2

REPORT INFORMATION
  Report Type: Other
  Country: NL (occurrence: NL)
  Receive Date: 20210520
  Receipt Date: 20210520
  Transmission Date: 20210717
  Serious: Yes (Hospitalization)
  Sender: FDA-Public Use
  Company Number: NL-STRIDES ARCOLAB LIMITED-2021SP005608

PATIENT
  Age: 22 Year
  Sex: Male
  Weight: 88 kg

DRUGS (1)
  1. IBUPROFEN. [Suspect]
     Active Substance: IBUPROFEN
     Indication: PAIN
     Dosage: UNK
     Route: 065
     Dates: start: 202005, end: 20200514

REACTIONS (1)
  - Syncope [Unknown]

NARRATIVE: CASE EVENT DATE: 20200514
